FAERS Safety Report 4351230-9 (Version None)
Quarter: 2004Q2

REPORT INFORMATION
  Report Type: 
  Country: None (occurrence: None)
  Receive Date: 20040428
  Receipt Date: 20040413
  Transmission Date: 20050107
  Serious: Yes (Death, Hospitalization, Other)
  Sender: FDA-Public Use
  Company Number: US_040199812

PATIENT
  Age: 55 Year
  Sex: Male
  Weight: 54 kg

DRUGS (10)
  1. XIGRIS [Suspect]
     Indication: SEPSIS
     Dosage: 1.233 UG/HOUR
     Dates: start: 20031210, end: 20031212
  2. SOLU-CORTEF [Concomitant]
  3. PROTONIX [Concomitant]
  4. DILANTIN [Concomitant]
  5. VANCOMYCIN [Concomitant]
  6. FLAGYL [Concomitant]
  7. ZITHROMAX [Concomitant]
  8. DOPAMINE HCL [Concomitant]
  9. AMIKACIN [Concomitant]
  10. TPN [Concomitant]

REACTIONS (13)
  - ACTIVATED PARTIAL THROMBOPLASTIN TIME PROLONGED [None]
  - ATHEROSCLEROSIS [None]
  - BACTERAEMIA [None]
  - BLOOD FIBRINOGEN INCREASED [None]
  - COLITIS [None]
  - DECUBITUS ULCER [None]
  - HEPATOMEGALY [None]
  - HYPERADRENALISM [None]
  - INTERNATIONAL NORMALISED RATIO INCREASED [None]
  - LUNG CONSOLIDATION [None]
  - OESOPHAGEAL DISORDER [None]
  - PROTHROMBIN TIME PROLONGED [None]
  - THROMBOCYTOPENIA [None]
